FAERS Safety Report 4360196-7 (Version None)
Quarter: 2004Q2

REPORT INFORMATION
  Report Type: 
  Country: None (occurrence: None)
  Receive Date: 20040518
  Receipt Date: 20040518
  Transmission Date: 20050107
  Serious: Yes (Hospitalization)
  Sender: FDA-Public Use
  Company Number: None

PATIENT
  Sex: Female
  Weight: 69.4003 kg

DRUGS (4)
  1. CARBAMAZEPINE [Suspect]
     Dosage: 200 MG BID ORAL
     Route: 048
     Dates: start: 20040319, end: 20040419
  2. IMITREX [Concomitant]
  3. ZOMISAMIDE [Concomitant]
  4. HYDROCODONE [Concomitant]

REACTIONS (1)
  - MIGRAINE [None]
